FAERS Safety Report 21398083 (Version 1)
Quarter: 2022Q3

REPORT INFORMATION
  Report Type: Spontaneous
  Country: US (occurrence: US)
  Receive Date: 20220930
  Receipt Date: 20220930
  Transmission Date: 20221027
  Serious: No
  Sender: FDA-Public Use
  Company Number: US-SA-SAC20220923001291

PATIENT
  Age: 58 Year
  Sex: Female

DRUGS (1)
  1. DUPIXENT [Suspect]
     Active Substance: DUPILUMAB
     Dosage: 600 MG; OTHER
     Route: 058
     Dates: start: 20220917, end: 20220917

REACTIONS (3)
  - Pruritus [Unknown]
  - Rash macular [Unknown]
  - Eczema [Unknown]

NARRATIVE: CASE EVENT DATE: 20220101
